FAERS Safety Report 8342131-X (Version None)
Quarter: 2012Q2

REPORT INFORMATION
  Report Type: 
  Country: None (occurrence: None)
  Receive Date: 20120507
  Receipt Date: 20120416
  Transmission Date: 20120825
  Serious: Yes (Hospitalization, Other)
  Sender: FDA-Public Use
  Company Number: GB-BAXTER-2012BAX003046

PATIENT
  Sex: Male
  Weight: 49 kg

DRUGS (29)
  1. IFOSFAMIDE [Suspect]
     Route: 041
     Dates: start: 20110924
  2. IFOSFAMIDE [Suspect]
     Route: 041
     Dates: start: 20111104
  3. IFOSFAMIDE [Suspect]
     Route: 041
     Dates: start: 20111125
  4. VINCRISTINE [Suspect]
     Route: 040
     Dates: start: 20111104
  5. MELATONIN [Concomitant]
     Route: 065
     Dates: start: 20110915
  6. VINCRISTINE [Suspect]
     Route: 041
     Dates: start: 20110924
  7. HYOSCINE HBR HYT [Concomitant]
     Route: 065
     Dates: start: 20110925
  8. MST                                /00036302/ [Concomitant]
     Route: 065
     Dates: start: 20110918
  9. METOCLOPRAMIDE [Concomitant]
     Route: 065
     Dates: start: 20111120, end: 20111128
  10. CAVILON [Concomitant]
     Route: 061
     Dates: start: 20111003
  11. BEVACIZUMAB [Suspect]
     Route: 041
     Dates: start: 20110924, end: 20110924
  12. BEVACIZUMAB [Suspect]
     Route: 041
     Dates: start: 20111125
  13. DACTINOMYCIN [Suspect]
     Route: 040
     Dates: start: 20110924
  14. DACTINOMYCIN [Suspect]
     Route: 040
     Dates: start: 20111104
  15. DACTINOMYCIN [Suspect]
     Route: 040
     Dates: start: 20111125
  16. ACETAMINOPHEN [Concomitant]
     Route: 065
     Dates: start: 20111007
  17. ACETAMINOPHEN [Concomitant]
     Route: 065
     Dates: start: 20111120, end: 20111126
  18. MESNA [Suspect]
     Route: 041
     Dates: start: 20111104
  19. DOXORUBICIN HCL [Suspect]
     Route: 041
     Dates: start: 20111125
  20. MOVICOL                            /01625101/ [Concomitant]
     Dosage: 1-2 SACH
     Route: 065
     Dates: start: 20110914
  21. ONDANSETRON [Concomitant]
     Route: 065
     Dates: start: 20110928
  22. ONDANSETRON [Concomitant]
     Route: 065
     Dates: start: 20111127, end: 20111128
  23. DOXORUBICIN HCL [Suspect]
     Route: 041
     Dates: start: 20111104
  24. MOVICOL                            /01625101/ [Concomitant]
     Route: 065
     Dates: start: 20111121, end: 20111123
  25. BEVACIZUMAB [Suspect]
     Route: 041
     Dates: start: 20111104
  26. DOCUSATE SODIUM [Concomitant]
     Dates: start: 20111007
  27. METOCLOPRAMIDE [Concomitant]
     Route: 065
     Dates: start: 20110924
  28. DOXORUBICIN HCL [Suspect]
     Route: 041
     Dates: start: 20110924
  29. VINCRISTINE [Suspect]
     Route: 040
     Dates: start: 20111125

REACTIONS (3)
  - FEBRILE NEUTROPENIA [None]
  - INGROWING NAIL [None]
  - EPISTAXIS [None]
